FAERS Safety Report 6673367-1 (Version None)
Quarter: 2010Q2

REPORT INFORMATION
  Report Type: 
  Country: None (occurrence: None)
  Receive Date: 20100408
  Receipt Date: 20091101
  Transmission Date: 20101027
  Serious: Yes (Life-Threatening, Hospitalization)
  Sender: FDA-Public Use
  Company Number: GXKR2009DK11942

PATIENT
  Sex: Female

DRUGS (1)
  1. TERBINAFINE [Suspect]
     Indication: ONYCHOMYCOSIS
     Dosage: 250 MG PER DAY
     Route: 048
     Dates: start: 20080417, end: 20080530

REACTIONS (3)
  - AGRANULOCYTOSIS [None]
  - MALAISE [None]
  - OROPHARYNGEAL PAIN [None]
